FAERS Safety Report 7605437-5 (Version None)
Quarter: 2011Q3

REPORT INFORMATION
  Report Type: 
  Country: None (occurrence: None)
  Receive Date: 20110705
  Receipt Date: 20110624
  Transmission Date: 20111222
  Serious: Yes (Life-Threatening)
  Sender: FDA-Public Use
  Company Number: TCI2011A03617

PATIENT
  Age: 84 Year
  Sex: Male

DRUGS (7)
  1. ACTOS [Suspect]
     Indication: DIABETES MELLITUS
     Dosage: 15 MG (15 MG, 1 IN 1 D), PER ORAL
     Route: 048
     Dates: start: 20060401, end: 20110615
  2. DIOVAN [Concomitant]
  3. ASPIRIN [Concomitant]
  4. AMARYL [Concomitant]
  5. FERROMIA (FERROUS SULFATE) [Concomitant]
  6. NORVASC [Concomitant]
  7. ISODADOL(DIFENIDOL HYDROCHLORIDE) [Concomitant]

REACTIONS (2)
  - HAEMATURIA [None]
  - BLADDER CANCER [None]
